FAERS Safety Report 18668057 (Version 1)
Quarter: 2020Q4

REPORT INFORMATION
  Report Type: Spontaneous
  Country: DE (occurrence: DE)
  Receive Date: 20201228
  Receipt Date: 20201228
  Transmission Date: 20210114
  Serious: Yes (Other)
  Sender: FDA-Public Use
  Company Number: NVSC2020DE333218

PATIENT
  Sex: Female

DRUGS (2)
  1. CARBAMAZEPINE. [Suspect]
     Active Substance: CARBAMAZEPINE
     Indication: TRIGEMINAL NEURALGIA
  2. CARBAMAZEPINE. [Suspect]
     Active Substance: CARBAMAZEPINE
     Indication: SWELLING FACE
     Dosage: 2 DF, QD (1-0-1)
     Route: 065

REACTIONS (9)
  - Concussion [Unknown]
  - Fall [Unknown]
  - Facial bones fracture [Unknown]
  - Inflammation [Unknown]
  - Intentional product misuse [Unknown]
  - Dizziness [Unknown]
  - Chills [Unknown]
  - Pain [Not Recovered/Not Resolved]
  - Amnesia [Unknown]

NARRATIVE: CASE EVENT DATE: 20201130
